FAERS Safety Report 8766078 (Version 1)
Quarter: 2012Q4

REPORT INFORMATION
  Report Type: 
  Country: US (occurrence: US)
  Receive Date: 20120904
  Receipt Date: 20120904
  Transmission Date: 20130627
  Serious: No
  Sender: FDA-Public Use
  Company Number: US-AMGEN-USASP2012054791

PATIENT
  Age: 58 Year

DRUGS (1)
  1. ENBREL [Suspect]
     Indication: PSORIATIC ARTHROPATHY
     Dosage: 50 UNK, week
     Route: 058
     Dates: start: 20120125

REACTIONS (5)
  - Erythema [Unknown]
  - Drug effect incomplete [Unknown]
  - Pain of skin [Unknown]
  - Carpal tunnel syndrome [Unknown]
  - Rash pustular [Unknown]
